FAERS Safety Report 12343634 (Version 1)
Quarter: 2016Q2

REPORT INFORMATION
  Report Type: Spontaneous
  Country: US (occurrence: US)
  Receive Date: 20160506
  Receipt Date: 20160506
  Transmission Date: 20160815
  Serious: Yes (Other)
  Sender: FDA-Public Use
  Company Number: US-ALLERGAN-1656059US

PATIENT
  Age: 61 Year
  Sex: Female
  Weight: 54.42 kg

DRUGS (1)
  1. BOTOX COSMETIC [Suspect]
     Active Substance: ONABOTULINUMTOXINA
     Indication: PRODUCT USED FOR UNKNOWN INDICATION
     Dosage: UNK UNK, SINGLE
     Route: 030

REACTIONS (7)
  - Gastrointestinal injury [Unknown]
  - Scar [Not Recovered/Not Resolved]
  - Pain [Not Recovered/Not Resolved]
  - Bladder injury [Recovered/Resolved]
  - Multiple fractures [Recovered/Resolved]
  - Road traffic accident [Recovered/Resolved]
  - Nerve injury [Not Recovered/Not Resolved]

NARRATIVE: CASE EVENT DATE: 2015
